FAERS Safety Report 25032580 (Version 1)
Quarter: 2025Q1

REPORT INFORMATION
  Report Type: Spontaneous
  Country: IT (occurrence: IT)
  Receive Date: 20250303
  Receipt Date: 20250303
  Transmission Date: 20250408
  Serious: Yes (Hospitalization, Other)
  Sender: MYLAN
  Company Number: IT-BRUNO-20250046

PATIENT
  Age: 13 Year
  Sex: Female

DRUGS (1)
  1. PREDNISONE [Suspect]
     Active Substance: PREDNISONE
     Indication: B-cell type acute leukaemia
     Dosage: 60 MILLIGRAM/SQ. METER, QD

REACTIONS (2)
  - Status epilepticus [Recovered/Resolved]
  - Posterior reversible encephalopathy syndrome [Recovered/Resolved]
